FAERS Safety Report 9676370 (Version 3)
Quarter: 2013Q4

REPORT INFORMATION
  Report Type: Spontaneous
  Country: US (occurrence: None)
  Receive Date: 20131106
  Receipt Date: 20131204
  Transmission Date: 20140711
  Serious: Yes (Hospitalization)
  Sender: FDA-Public Use
  Company Number: AUR-APL-2013-09207

PATIENT
  Age: 31 Year
  Sex: Female

DRUGS (9)
  1. ONDANSETRON (ONDANSETRON) [Suspect]
     Indication: NAUSEA
  2. OLANZAPINE (OLANZAPINE) [Suspect]
     Indication: DELIRIUM
     Route: 048
  3. OLANZAPINE (OLANZAPINE) [Suspect]
     Indication: AGITATION
     Route: 048
  4. OLANZAPINE (OLANZAPINE) [Suspect]
     Indication: PAIN
     Route: 048
  5. HALOPERIDOL (HALOPERIDOL) (HALOPERIDOL) [Suspect]
     Indication: AGITATION
     Route: 042
  6. METHADONE (METHADONE) [Suspect]
     Indication: BACK PAIN
     Route: 042
  7. METHADONE (METHADONE) [Suspect]
     Indication: ABDOMINAL PAIN
     Route: 042
  8. METHADONE (METHADONE) [Suspect]
     Indication: DRUG WITHDRAWAL SYNDROME
     Route: 042
  9. HYDROMORPHONE (HYDROMORPHONE) [Suspect]
     Indication: NAUSEA

REACTIONS (10)
  - Torsade de pointes [None]
  - Device malfunction [None]
  - Nausea [None]
  - Unresponsive to stimuli [None]
  - Nodal rhythm [None]
  - Ventricular extrasystoles [None]
  - Myocarditis [None]
  - Delirium [None]
  - Agitation [None]
  - Pain [None]
